FAERS Safety Report 5198168-5 (Version None)
Quarter: 2007Q1

REPORT INFORMATION
  Report Type: 
  Country: None (occurrence: None)
  Receive Date: 20070104
  Receipt Date: 20061228
  Transmission Date: 20070707
  Serious: Yes (Life-Threatening)
  Sender: FDA-Public Use
  Company Number: JP-ROCHE-476632

PATIENT
  Age: 60 Year
  Sex: Female

DRUGS (2)
  1. XELODA [Suspect]
     Indication: BREAST CANCER
     Dosage: DRUG REPORTED AS: XELODA 300.
     Route: 048
     Dates: start: 20060822, end: 20061222
  2. ZOMETA [Concomitant]
     Dosage: ROUTE REPORTED AS: INJECTABLE (NOT OTHERWISE SPECIFIED).
     Route: 050

REACTIONS (1)
  - BLOOD SODIUM DECREASED [None]
